FAERS Safety Report 5188831-4 (Version None)
Quarter: 2006Q4

REPORT INFORMATION
  Report Type: 
  Country: None (occurrence: None)
  Receive Date: 20061215
  Receipt Date: 20060912
  Transmission Date: 20070319
  Serious: Yes (Other)
  Sender: FDA-Public Use
  Company Number: AEDO2006-12-09MED1

PATIENT
  Age: 91 Year
  Sex: Male
  Weight: 97.5234 kg

DRUGS (3)
  1. FLUOROURACIL [Suspect]
     Indication: PRURITUS
     Dosage: 2 DROPS TWICE DAILY
     Dates: start: 20060814
  2. SYNTHROID [Concomitant]
  3. LIPITOR [Concomitant]

REACTIONS (2)
  - VISION BLURRED [None]
  - VISUAL DISTURBANCE [None]
